FAERS Safety Report 10211005 (Version 1)
Quarter: 2014Q2

REPORT INFORMATION
  Report Type: Spontaneous
  Country: IN (occurrence: None)
  Receive Date: 20140528
  Receipt Date: 20140528
  Transmission Date: 20141212
  Serious: Yes (Death, Other)
  Sender: FDA-Public Use
  Company Number: AUR-APL-2014-06074

PATIENT
  Age: 27 Year
  Sex: Female

DRUGS (7)
  1. PIPERACILLIN+TAZOBACTAM [Suspect]
     Indication: PRODUCT USED FOR UNKNOWN INDICATION
  2. TRIMETHOPRIM+SULFAMETHOXAZOLE [Suspect]
     Indication: PRODUCT USED FOR UNKNOWN INDICATION
     Dosage: 15 MG/KG, 1 D, UNKNOWN
  3. LEVOFLOXACIN [Suspect]
     Indication: PRODUCT USED FOR UNKNOWN INDICATION
     Route: 051
  4. TACROLIMUS (TACROLIMUS) [Concomitant]
  5. MYCOPHENOLATE MOFETIL [Concomitant]
  6. PREDNISOLON (PREDNISOLONE) [Concomitant]
  7. SIROLIMUS (SIROLIMUS) [Concomitant]

REACTIONS (6)
  - Pneumocystis jirovecii pneumonia [None]
  - Transplant dysfunction [None]
  - Blood lactate dehydrogenase increased [None]
  - Haemodialysis [None]
  - Multi-organ disorder [None]
  - Haemoglobin decreased [None]
